FAERS Safety Report 9084231 (Version 1)
Quarter: 2013Q1

REPORT INFORMATION
  Report Type: Report from Study
  Country: US (occurrence: US)
  Receive Date: 20130131
  Receipt Date: 20130131
  Transmission Date: 20140127
  Serious: No
  Sender: FDA-Public Use
  Company Number: US-ABBOTT-12P-163-1014748-00

PATIENT
  Sex: Female
  Weight: 83.99 kg

DRUGS (6)
  1. HUMIRA [Suspect]
     Indication: CROHN^S DISEASE
     Dates: start: 200811, end: 201210
  2. HUMIRA [Suspect]
     Dates: start: 201210
  3. ENTECORT [Concomitant]
     Indication: CROHN^S DISEASE
  4. BELLADONNA [Concomitant]
     Indication: CROHN^S DISEASE
  5. FLEXARIL [Concomitant]
     Indication: FIBROMYALGIA
  6. LORTAB [Concomitant]
     Indication: CROHN^S DISEASE

REACTIONS (5)
  - Coeliac disease [Not Recovered/Not Resolved]
  - White blood cell count increased [Not Recovered/Not Resolved]
  - Fistula [Not Recovered/Not Resolved]
  - Unevaluable event [Not Recovered/Not Resolved]
  - Crohn^s disease [Not Recovered/Not Resolved]
